FAERS Safety Report 17469309 (Version 2)
Quarter: 2021Q1

REPORT INFORMATION
  Report Type: Report from Study
  Country: ID (occurrence: ID)
  Receive Date: 20200227
  Receipt Date: 20210120
  Transmission Date: 20210419
  Serious: Yes (Death, Hospitalization, Other)
  Sender: FDA-Public Use
  Company Number: ID-ASTRAZENECA-2020SE26491

PATIENT
  Age: 25300 Day
  Sex: Female

DRUGS (1)
  1. TAGRISSO [Suspect]
     Active Substance: OSIMERTINIB
     Indication: NON-SMALL CELL LUNG CANCER
     Route: 048
     Dates: start: 20190710

REACTIONS (10)
  - Asthenia [Unknown]
  - Dyspnoea [Recovering/Resolving]
  - Dry skin [Recovering/Resolving]
  - Gait disturbance [Unknown]
  - Blood sodium decreased [Recovering/Resolving]
  - Decreased appetite [Fatal]
  - General physical health deterioration [Unknown]
  - Pleural effusion [Not Recovered/Not Resolved]
  - Increased appetite [Recovering/Resolving]
  - Death [Fatal]

NARRATIVE: CASE EVENT DATE: 20200221
